FAERS Safety Report 18050289 (Version 2)
Quarter: 2020Q3

REPORT INFORMATION
  Report Type: Report from Study
  Country: AT (occurrence: AT)
  Receive Date: 20200721
  Receipt Date: 20200811
  Transmission Date: 20201103
  Serious: Yes (Hospitalization)
  Sender: FDA-Public Use
  Company Number: AT-CELGENEUS-AUT-20200703599

PATIENT
  Age: 75 Year
  Sex: Male
  Weight: 77.2 kg

DRUGS (24)
  1. CARBOPLATIN/TAXANE [Suspect]
     Active Substance: CARBOPLATIN
     Indication: NON-SMALL CELL LUNG CANCER STAGE IV
     Dosage: TITRATED TO AN AREA UNDER THE CURVE (AUC) 6 MG/ML/MIN, ON DAY 1, Q3W
     Route: 041
     Dates: start: 20200514, end: 20200610
  2. ZOFRAN [Concomitant]
     Active Substance: ONDANSETRON HYDROCHLORIDE
     Dosage: 8 MILLIGRAM
     Route: 042
     Dates: start: 20200702, end: 20200702
  3. DIPHENHYDRAMINE. [Concomitant]
     Active Substance: DIPHENHYDRAMINE
     Indication: CHEMOTHERAPY SIDE EFFECT PROPHYLAXIS
     Dosage: 30 MILLIGRAM
     Route: 042
     Dates: start: 20200624, end: 20200624
  4. RANITIDINE. [Concomitant]
     Active Substance: RANITIDINE
     Indication: CHEMOTHERAPY SIDE EFFECT PROPHYLAXIS
     Dosage: 50 MILLIGRAM
     Route: 042
     Dates: start: 20200624, end: 20200624
  5. GLUCOCORTICOIDS [Concomitant]
     Active Substance: UNSPECIFIED INGREDIENT
     Indication: NEPHRITIS
     Route: 065
     Dates: start: 202007
  6. EPORATIO [Concomitant]
     Active Substance: ERYTHROPOIETIN
     Indication: ANAEMIA
     Route: 065
     Dates: start: 202007
  7. ABRAXANE [Suspect]
     Active Substance: PACLITAXEL
     Indication: NON-SMALL CELL LUNG CANCER STAGE IV
     Dosage: 100 MILLIGRAM/SQ. METER
     Route: 042
     Dates: start: 20200514, end: 20200624
  8. ZOFRAN [Concomitant]
     Active Substance: ONDANSETRON HYDROCHLORIDE
     Dosage: 8 MILLIGRAM
     Route: 042
     Dates: start: 20200624, end: 20200624
  9. EMEND [Concomitant]
     Active Substance: APREPITANT
     Dosage: 125 MILLIGRAM
     Route: 048
     Dates: start: 20200702, end: 20200702
  10. FORTECORTIN [Concomitant]
     Active Substance: DEXAMETHASONE
     Indication: CHEMOTHERAPY SIDE EFFECT PROPHYLAXIS
     Dosage: 16 MILLIGRAM
     Route: 048
     Dates: start: 20200703, end: 20200703
  11. ZOFRAN [Concomitant]
     Active Substance: ONDANSETRON HYDROCHLORIDE
     Indication: CHEMOTHERAPY SIDE EFFECT PROPHYLAXIS
     Dosage: 8 MILLIGRAM
     Route: 048
     Dates: start: 20200514
  12. DEXAMETHASONE (DEXAMETHASONE SODIUM PHOSPHATE) [Concomitant]
     Dosage: 20 MILLIGRAM
     Route: 042
     Dates: start: 20200702, end: 20200702
  13. ABRAXANE [Suspect]
     Active Substance: PACLITAXEL
     Dosage: 100 MILLIGRAM/SQ. METER
     Route: 042
     Dates: start: 20200702, end: 20200702
  14. MK 3475 [Suspect]
     Active Substance: PEMBROLIZUMAB
     Dosage: 200 MILLIGRAM
     Route: 042
     Dates: start: 20200702, end: 20200702
  15. ASPIRIN (THROMBO ASS) [Concomitant]
     Active Substance: ASPIRIN
     Indication: PROPHYLAXIS
     Dosage: 100 MILLIGRAM
     Route: 048
     Dates: start: 200901
  16. BRIMICA (ACLIDINIUM BROMIDE+FORMETEROL FUMERATE) [Concomitant]
     Indication: CHRONIC OBSTRUCTIVE PULMONARY DISEASE
     Dosage: 2 PUFF
     Route: 055
     Dates: start: 20200520
  17. RANITIDINE. [Concomitant]
     Active Substance: RANITIDINE
     Dosage: 50 MILLIGRAM
     Route: 042
     Dates: start: 20200702, end: 20200702
  18. CARBOPLATIN/TAXANE [Suspect]
     Active Substance: CARBOPLATIN
     Dosage: TITRATED TO AN AREA UNDER THE CURVE (AUC) 6 MG/ML/MIN, ON DAY 1, Q3W
     Route: 041
     Dates: start: 20200702, end: 20200702
  19. BERODUAL (FENTONYL HYDROBROMIDE+IPRATROPIUM BROMIDE) [Concomitant]
     Active Substance: FENOTEROL HYDROBROMIDE\IPRATROPIUM BROMIDE
     Indication: CHRONIC OBSTRUCTIVE PULMONARY DISEASE
     Dosage: 2 PUFF
     Route: 055
     Dates: start: 201901
  20. EMEND [Concomitant]
     Active Substance: APREPITANT
     Indication: CHEMOTHERAPY SIDE EFFECT PROPHYLAXIS
     Dosage: 125 MILLIGRAM
     Route: 048
     Dates: start: 20200624, end: 20200624
  21. EPORATIO [Concomitant]
     Active Substance: ERYTHROPOIETIN
     Indication: THROMBOCYTOPENIA
  22. DEXAMETHASONE (DEXAMETHASONE SODIUM PHOSPHATE) [Concomitant]
     Indication: CHEMOTHERAPY SIDE EFFECT PROPHYLAXIS
     Dosage: 20 MILLIGRAM
     Route: 042
     Dates: start: 20200624, end: 20200624
  23. DIPHENHYDRAMINE. [Concomitant]
     Active Substance: DIPHENHYDRAMINE
     Dosage: 30 MILLIGRAM
     Route: 042
     Dates: start: 20200702, end: 20200702
  24. MK 3475 [Suspect]
     Active Substance: PEMBROLIZUMAB
     Indication: NON-SMALL CELL LUNG CANCER STAGE IV
     Dosage: 200 MILLIGRAM
     Route: 042
     Dates: start: 20200514, end: 20200610

REACTIONS (1)
  - Renal failure [Not Recovered/Not Resolved]

NARRATIVE: CASE EVENT DATE: 20200707
